FAERS Safety Report 11199109 (Version 1)
Quarter: 2015Q2

REPORT INFORMATION
  Report Type: Spontaneous
  Country: US (occurrence: US)
  Receive Date: 20150618
  Receipt Date: 20150618
  Transmission Date: 20150821
  Serious: No
  Sender: FDA-Public Use
  Company Number: US-TEVA-500502USA

PATIENT
  Age: 57 Year

DRUGS (1)
  1. LAMOTRIGINE. [Suspect]
     Active Substance: LAMOTRIGINE
     Indication: BIPOLAR DISORDER
     Route: 065
     Dates: start: 20121001

REACTIONS (5)
  - Dysphagia [Unknown]
  - Product physical issue [Unknown]
  - Product taste abnormal [Unknown]
  - Foreign body [Unknown]
  - Dysgeusia [Unknown]

NARRATIVE: CASE EVENT DATE: 201406
